FAERS Safety Report 11358873 (Version 1)
Quarter: 2015Q3

REPORT INFORMATION
  Report Type: Spontaneous
  Country: US (occurrence: None)
  Receive Date: 20150709
  Receipt Date: 20150709
  Transmission Date: 20151125
  Serious: Yes (Other)
  Sender: FDA-Public Use
  Company Number: PHEH2014US025722

PATIENT
  Age: 54 Year
  Sex: Male
  Weight: 97 kg

DRUGS (15)
  1. ATENOLOL (ATENOLOL) [Concomitant]
     Active Substance: ATENOLOL
  2. DILAUDID [Concomitant]
     Active Substance: HYDROMORPHONE HYDROCHLORIDE
  3. CARAFATE (SUCRALFATE) [Concomitant]
  4. GABAPENTIN (GABAPENTIN) [Concomitant]
     Active Substance: GABAPENTIN
  5. ONDANSETRON. [Concomitant]
     Active Substance: ONDANSETRON
  6. PROCHLORPERAZINE (PROCHLORPERAZINE) [Concomitant]
     Active Substance: PROCHLORPERAZINE
  7. ZOVIRAX (ACICLOVIR SODIUM) [Concomitant]
  8. PRILOSEC (OMEPRAZOLE) [Concomitant]
     Active Substance: OMEPRAZOLE MAGNESIUM
  9. MEDROL (METHYLPREDNISOLONE) [Concomitant]
  10. FOLIC ACID (FOLIC ACID) [Concomitant]
     Active Substance: FOLIC ACID
  11. OXYCONTIN [Concomitant]
     Active Substance: OXYCODONE HYDROCHLORIDE
  12. XANAX [Concomitant]
     Active Substance: ALPRAZOLAM
  13. LEVAQUIN [Concomitant]
     Active Substance: LEVOFLOXACIN
  14. SPRYCEL/DASATINIB (DASATINIB) [Concomitant]
  15. GLEEVEC [Suspect]
     Active Substance: IMATINIB MESYLATE
     Indication: CHRONIC MYELOID LEUKAEMIA

REACTIONS (10)
  - Abdominal pain upper [None]
  - No therapeutic response [None]
  - Platelet count decreased [None]
  - Skin reaction [None]
  - Depression [None]
  - Haemoglobin decreased [None]
  - Red blood cell count decreased [None]
  - Blood pressure decreased [None]
  - White blood cell count decreased [None]
  - Drug intolerance [None]

NARRATIVE: CASE EVENT DATE: 20150105
